FAERS Safety Report 7593427-0 (Version None)
Quarter: 2011Q3

REPORT INFORMATION
  Report Type: 
  Country: None (occurrence: None)
  Receive Date: 20110706
  Receipt Date: 20110701
  Transmission Date: 20111222
  Serious: Yes (Hospitalization)
  Sender: FDA-Public Use
  Company Number: JP-MERCK-1107USA00298

PATIENT
  Age: 70 Year
  Sex: Male

DRUGS (8)
  1. AMIODARONE HCL [Suspect]
     Route: 048
  2. AMARYL [Concomitant]
     Route: 065
  3. MEXITIL [Concomitant]
     Route: 065
  4. JANUVIA [Suspect]
     Indication: TYPE 2 DIABETES MELLITUS
     Route: 048
     Dates: start: 20110310
  5. WARFARIN [Concomitant]
     Route: 065
  6. PRAVASTATIN SODIUM [Concomitant]
     Route: 065
  7. BISOPROLOL FUMARATE [Concomitant]
     Route: 065
  8. REZALTAS [Concomitant]
     Route: 065

REACTIONS (1)
  - INTERSTITIAL LUNG DISEASE [None]
